FAERS Safety Report 6275094-1 (Version None)
Quarter: 2009Q3

REPORT INFORMATION
  Report Type: 
  Country: None (occurrence: None)
  Receive Date: 20090721
  Receipt Date: 20090708
  Transmission Date: 20100115
  Serious: Yes (Other)
  Sender: FDA-Public Use
  Company Number: PHHY2009GB23449

PATIENT
  Sex: Female

DRUGS (2)
  1. EXJADE [Suspect]
     Indication: IRON OVERLOAD
     Dosage: 1125 MG/DAY
     Route: 048
     Dates: start: 20090302
  2. PENICILLIN V [Concomitant]
     Dosage: 250 MG, BID

REACTIONS (5)
  - ABDOMINAL DISTENSION [None]
  - ABDOMINAL PAIN UPPER [None]
  - FAECES DISCOLOURED [None]
  - NAUSEA [None]
  - VOMITING [None]
